FAERS Safety Report 6202541-3 (Version None)
Quarter: 2009Q2

REPORT INFORMATION
  Report Type: 
  Country: None (occurrence: None)
  Receive Date: 20090526
  Receipt Date: 20090520
  Transmission Date: 20091009
  Serious: Yes (Other)
  Sender: FDA-Public Use
  Company Number: US-ALLERGAN-0905817US

PATIENT
  Age: 63 Year
  Sex: Female

DRUGS (5)
  1. LATISSE [Suspect]
     Indication: GROWTH OF EYELASHES
     Dosage: UNK, QHS
     Route: 061
  2. THYROID TAB [Concomitant]
     Indication: HYPOTHYROIDISM
  3. HORMONES NOS [Concomitant]
     Indication: HORMONE REPLACEMENT THERAPY
  4. LIPITOR [Concomitant]
     Indication: HYPERCHOLESTEROLAEMIA
  5. NORVASC [Concomitant]

REACTIONS (2)
  - CHEST PAIN [None]
  - MUSCLE TIGHTNESS [None]
